FAERS Safety Report 8814369 (Version 1)
Quarter: 2012Q4

REPORT INFORMATION
  Report Type: 
  Country: AU (occurrence: AU)
  Receive Date: 20120928
  Receipt Date: 20120928
  Transmission Date: 20130627
  Serious: Yes (Other)
  Sender: FDA-Public Use
  Company Number: PHHY2012AU084021

PATIENT
  Age: 64 Year
  Sex: Female

DRUGS (1)
  1. ZOMETA [Suspect]
     Indication: BREAST CANCER
     Dosage: UNK UKN, UNK

REACTIONS (5)
  - Metastases to spine [Unknown]
  - Metastases to liver [Unknown]
  - Metastases to lung [Unknown]
  - Facial nerve disorder [Unknown]
  - Tooth disorder [Unknown]
